FAERS Safety Report 7819034-X (Version None)
Quarter: 2011Q4

REPORT INFORMATION
  Report Type: 
  Country: None (occurrence: None)
  Receive Date: 20111012
  Receipt Date: 20110926
  Transmission Date: 20120403
  Serious: Yes (Other)
  Sender: FDA-Public Use
  Company Number: 2011P1009098

PATIENT
  Age: 29 Year
  Sex: Female
  Weight: 71.6683 kg

DRUGS (3)
  1. OXYCODONE HCL [Concomitant]
  2. OVIDE [Suspect]
     Indication: LICE INFESTATION
     Dosage: X2; TOP
     Route: 061
     Dates: start: 20110801, end: 20110801
  3. XANAX [Concomitant]

REACTIONS (7)
  - PAIN IN EXTREMITY [None]
  - GAIT DISTURBANCE [None]
  - MUSCLE ATROPHY [None]
  - PERONEAL NERVE PALSY [None]
  - OEDEMA PERIPHERAL [None]
  - HYPOAESTHESIA [None]
  - BURNING SENSATION [None]
